FAERS Safety Report 15645161 (Version 3)
Quarter: 2019Q1

REPORT INFORMATION
  Report Type: Spontaneous
  Country: US (occurrence: US)
  Receive Date: 20181121
  Receipt Date: 20190121
  Transmission Date: 20190417
  Serious: No
  Sender: FDA-Public Use
  Company Number: US-BAYER-2018-214187

PATIENT
  Age: 57 Year
  Sex: Female

DRUGS (2)
  1. CLIMARA PRO [Suspect]
     Active Substance: ESTRADIOL\LEVONORGESTREL
     Indication: HOT FLUSH
     Dosage: UNK
     Route: 062
     Dates: start: 2017
  2. CLIMARA PRO [Suspect]
     Active Substance: ESTRADIOL\LEVONORGESTREL
     Indication: HOT FLUSH
     Dosage: UNK
     Route: 062
     Dates: start: 20181112

REACTIONS (7)
  - Product prescribing issue [None]
  - Product physical issue [None]
  - Migraine [None]
  - Product adhesion issue [None]
  - Product adhesion issue [None]
  - Wrong technique in product usage process [None]
  - Hot flush [Not Recovered/Not Resolved]

NARRATIVE: CASE EVENT DATE: 201809
